FAERS Safety Report 10127583 (Version 2)
Quarter: 2015Q1

REPORT INFORMATION
  Report Type: Other
  Country: US (occurrence: US)
  Receive Date: 20140428
  Receipt Date: 20150206
  Transmission Date: 20150720
  Serious: Yes (Hospitalization, Other)
  Sender: FDA-Public Use
  Company Number: US-GSKPPD-2014GSK030354

PATIENT
  Age: 71 Year
  Sex: Male

DRUGS (7)
  1. ZOCOR [Concomitant]
     Active Substance: SIMVASTATIN
     Route: 048
  2. COREG [Concomitant]
     Active Substance: CARVEDILOL
     Route: 048
  3. ENALAPRIL [Concomitant]
     Active Substance: ENALAPRIL
     Route: 048
  4. AVANDIA [Suspect]
     Active Substance: ROSIGLITAZONE MALEATE
     Indication: DIABETES MELLITUS
     Dosage: AVANDIA WAS NOT LISTED AMONG THE PATIENTS RECORDS REVIEWED
     Route: 048
  5. TRICOR [Concomitant]
     Active Substance: FENOFIBRATE
     Route: 048
  6. PLAVIX [Concomitant]
     Active Substance: CLOPIDOGREL BISULFATE
     Route: 048
  7. ATENOLOL. [Concomitant]
     Active Substance: ATENOLOL
     Route: 048

REACTIONS (1)
  - Cerebrovascular accident [Recovered/Resolved]

NARRATIVE: CASE EVENT DATE: 20080223
